FAERS Safety Report 23633289 (Version 2)
Quarter: 2024Q3

REPORT INFORMATION
  Report Type: Spontaneous
  Country: PL (occurrence: PL)
  Receive Date: 20240314
  Receipt Date: 20240829
  Transmission Date: 20241017
  Serious: Yes (Other)
  Sender: BAXTER
  Company Number: None

PATIENT
  Sex: Male

DRUGS (89)
  1. METOCLOPRAMIDE [Suspect]
     Active Substance: METOCLOPRAMIDE
     Indication: Product used for unknown indication
     Dosage: (DOSAGE TEXT: UNK)
     Route: 065
     Dates: start: 20230210, end: 20230210
  2. METOCLOPRAMIDE [Suspect]
     Active Substance: METOCLOPRAMIDE
     Dosage: (DOSAGE TEXT: UNK)
     Route: 065
     Dates: start: 20230307, end: 20230307
  3. METOCLOPRAMIDE [Suspect]
     Active Substance: METOCLOPRAMIDE
     Dosage: (DOSAGE TEXT: UNK)
     Route: 065
     Dates: start: 20221111, end: 20221111
  4. METOCLOPRAMIDE [Suspect]
     Active Substance: METOCLOPRAMIDE
     Dosage: (DOSAGE TEXT: UNK)
     Route: 065
     Dates: start: 20230103, end: 20230103
  5. METOCLOPRAMIDE [Suspect]
     Active Substance: METOCLOPRAMIDE
     Dosage: (DOSAGE TEXT: UNK)
     Route: 065
     Dates: start: 20230429, end: 20230429
  6. METOCLOPRAMIDE [Suspect]
     Active Substance: METOCLOPRAMIDE
     Dosage: (DOSAGE TEXT: UNK)
     Route: 065
     Dates: start: 20230503, end: 20230523
  7. METOCLOPRAMIDE [Suspect]
     Active Substance: METOCLOPRAMIDE
     Dosage: (DOSAGE TEXT: UNK)
     Route: 065
     Dates: start: 20230210, end: 20230210
  8. METOCLOPRAMIDE [Suspect]
     Active Substance: METOCLOPRAMIDE
     Dosage: (DOSAGE TEXT: UNK)
     Route: 065
     Dates: start: 20230523, end: 20230523
  9. METOCLOPRAMIDE [Suspect]
     Active Substance: METOCLOPRAMIDE
     Dosage: (DOSAGE TEXT: UNK)
     Route: 065
     Dates: start: 20221122, end: 20221122
  10. MANNITOL [Suspect]
     Active Substance: MANNITOL
     Indication: Product used for unknown indication
     Dosage: (DOSAGE TEXT: UNK)
     Route: 065
     Dates: start: 20221122, end: 20221122
  11. MANNITOL [Suspect]
     Active Substance: MANNITOL
     Dosage: (DOSAGE TEXT: UNK)
     Route: 065
     Dates: start: 20230103, end: 20230103
  12. MANNITOL [Suspect]
     Active Substance: MANNITOL
     Dosage: (DOSAGE TEXT: UNK)
     Route: 065
     Dates: start: 20230210, end: 20230210
  13. MANNITOL [Suspect]
     Active Substance: MANNITOL
     Dosage: (DOSAGE TEXT: UNK)
     Route: 065
     Dates: start: 20230429, end: 20230429
  14. MANNITOL [Suspect]
     Active Substance: MANNITOL
     Dosage: (DOSAGE TEXT: UNK)
     Route: 065
     Dates: start: 20230307, end: 20230307
  15. MANNITOL [Suspect]
     Active Substance: MANNITOL
     Dosage: (DOSAGE TEXT: UNK)
     Route: 065
     Dates: start: 20230523, end: 20230523
  16. MAGNESIUM [Suspect]
     Active Substance: MAGNESIUM
     Indication: Product used for unknown indication
     Dosage: (DOSAGE TEXT: UNK)
     Route: 042
     Dates: start: 20230523, end: 20230523
  17. MAGNESIUM [Suspect]
     Active Substance: MAGNESIUM
     Dosage: (DOSAGE TEXT: UNK)
     Route: 042
     Dates: start: 20230210, end: 20230210
  18. MAGNESIUM [Suspect]
     Active Substance: MAGNESIUM
     Dosage: (DOSAGE TEXT: UNK)
     Route: 042
     Dates: start: 20230429, end: 20230429
  19. MAGNESIUM [Suspect]
     Active Substance: MAGNESIUM
     Dosage: (DOSAGE TEXT: UNK)
     Route: 042
     Dates: start: 20230307, end: 20230307
  20. MAGNESIUM [Suspect]
     Active Substance: MAGNESIUM
     Dosage: (DOSAGE TEXT: UNK)
     Route: 042
     Dates: start: 20230103, end: 20230103
  21. MAGNESIUM [Suspect]
     Active Substance: MAGNESIUM
     Dosage: (DOSAGE TEXT: UNK)
     Route: 042
     Dates: start: 20221122, end: 20221122
  22. CISPLATIN [Suspect]
     Active Substance: CISPLATIN
     Indication: Product used for unknown indication
     Dosage: 70 MG (MILLIGRAM) (DOSAGE TEXT: 70 MG)
     Route: 042
     Dates: start: 20230423, end: 20230423
  23. CISPLATIN [Suspect]
     Active Substance: CISPLATIN
     Dosage: 60 MG (MILLIGRAM) (DOSAGE TEXT: 60 MG)
     Route: 042
     Dates: start: 20230525, end: 20230525
  24. CISPLATIN [Suspect]
     Active Substance: CISPLATIN
     Dosage: 200 MG (MILLIGRAM) (DOSAGE TEXT: 200 MG)
     Route: 042
     Dates: start: 20230103, end: 20230103
  25. CISPLATIN [Suspect]
     Active Substance: CISPLATIN
     Dosage: 200 MG (MILLIGRAM) (DOSAGE TEXT: 200 MG)
     Route: 042
     Dates: start: 20221122, end: 20221122
  26. CISPLATIN [Suspect]
     Active Substance: CISPLATIN
     Dosage: 200 MG (MILLIGRAM) (DOSAGE TEXT: 200 MG)
     Route: 042
     Dates: start: 20230210, end: 20230210
  27. CISPLATIN [Suspect]
     Active Substance: CISPLATIN
     Dosage: 60 MG (MILLIGRAM) (DOSAGE TEXT: 60 MG)
     Route: 042
     Dates: start: 20230501, end: 20230501
  28. CISPLATIN [Suspect]
     Active Substance: CISPLATIN
     Dosage: 70 MG (MILLIGRAM) (DOSAGE TEXT: 70 MG)
     Route: 042
     Dates: start: 20230524, end: 20230524
  29. CISPLATIN [Suspect]
     Active Substance: CISPLATIN
     Dosage: 70 MG (MILLIGRAM) (DOSAGE TEXT: 70 MG)
     Route: 042
     Dates: start: 20230430, end: 20230430
  30. CISPLATIN [Suspect]
     Active Substance: CISPLATIN
     Dosage: 200 MG (MILLIGRAM) (DOSAGE TEXT: 200 MG)
     Route: 042
     Dates: start: 20230307, end: 20230307
  31. CISPLATIN [Suspect]
     Active Substance: CISPLATIN
     Dosage: 70 MG (MILLIGRAM) (DOSAGE TEXT: 70 MG
     Route: 042
     Dates: start: 20230429, end: 20230429
  32. POTASSIUM CHLORIDE [Suspect]
     Active Substance: POTASSIUM CHLORIDE
     Indication: Product used for unknown indication
     Dosage: (DOSAGE TEXT: UNK)
     Route: 065
     Dates: start: 20221122, end: 20221122
  33. POTASSIUM CHLORIDE [Suspect]
     Active Substance: POTASSIUM CHLORIDE
     Dosage: (DOSAGE TEXT: UNK)
     Route: 065
     Dates: start: 20230210, end: 20230210
  34. POTASSIUM CHLORIDE [Suspect]
     Active Substance: POTASSIUM CHLORIDE
     Dosage: (DOSAGE TEXT: UNK)
     Route: 065
     Dates: start: 20230523, end: 20230523
  35. POTASSIUM CHLORIDE [Suspect]
     Active Substance: POTASSIUM CHLORIDE
     Dosage: (DOSAGE TEXT: UNK)
     Route: 065
     Dates: start: 20230307, end: 20230307
  36. POTASSIUM CHLORIDE [Suspect]
     Active Substance: POTASSIUM CHLORIDE
     Dosage: (DOSAGE TEXT: UNK)
     Route: 065
     Dates: start: 20230103, end: 20230103
  37. POTASSIUM CHLORIDE [Suspect]
     Active Substance: POTASSIUM CHLORIDE
     Dosage: (DOSAGE TEXT: UNK)
     Route: 065
     Dates: start: 20230429, end: 20230429
  38. DEXAMETHASONE [Suspect]
     Active Substance: DEXAMETHASONE
     Indication: Product used for unknown indication
     Dosage: (DOSAGE TEXT: UNK)
     Route: 065
     Dates: start: 20230210, end: 20230210
  39. DEXAMETHASONE [Suspect]
     Active Substance: DEXAMETHASONE
     Dosage: (DOSAGE TEXT: UNK)
     Route: 065
     Dates: start: 20230307, end: 20230307
  40. DEXAMETHASONE [Suspect]
     Active Substance: DEXAMETHASONE
     Dosage: (DOSAGE TEXT: UNK)
     Route: 065
     Dates: start: 20230523, end: 20230523
  41. DEXAMETHASONE [Suspect]
     Active Substance: DEXAMETHASONE
     Dosage: (DOSAGE TEXT: UNK)
     Route: 065
     Dates: start: 20230103, end: 20230103
  42. DEXAMETHASONE [Suspect]
     Active Substance: DEXAMETHASONE
     Dosage: (DOSAGE TEXT: UNK)
     Route: 065
     Dates: start: 20221122, end: 20221122
  43. DEXAMETHASONE [Suspect]
     Active Substance: DEXAMETHASONE
     Dosage: (DOSAGE TEXT: UNK)
     Route: 065
     Dates: start: 20230429, end: 20230429
  44. ZOFRAN [Suspect]
     Active Substance: ONDANSETRON HYDROCHLORIDE
     Indication: Product used for unknown indication
     Dosage: (DOSAGE TEXT: UNK)
     Route: 065
     Dates: start: 20230429, end: 20230429
  45. ZOFRAN [Suspect]
     Active Substance: ONDANSETRON HYDROCHLORIDE
     Dosage: (DOSAGE TEXT: UNK)
     Route: 065
  46. ZOFRAN [Suspect]
     Active Substance: ONDANSETRON HYDROCHLORIDE
     Dosage: (DOSAGE TEXT: UNK)
     Route: 065
     Dates: start: 20221122, end: 20221122
  47. ZOFRAN [Suspect]
     Active Substance: ONDANSETRON HYDROCHLORIDE
     Dosage: (DOSAGE TEXT: UNK)
     Route: 065
     Dates: start: 20230210, end: 20230210
  48. ZOFRAN [Suspect]
     Active Substance: ONDANSETRON HYDROCHLORIDE
     Dosage: (DOSAGE TEXT: UNK)
     Route: 065
     Dates: start: 20230523, end: 20230523
  49. ZOFRAN [Suspect]
     Active Substance: ONDANSETRON HYDROCHLORIDE
     Dosage: (DOSAGE TEXT: UNK)
     Route: 065
     Dates: start: 20230307, end: 20230307
  50. ZOFRAN [Suspect]
     Active Substance: ONDANSETRON HYDROCHLORIDE
     Dosage: (DOSAGE TEXT: UNK)
     Route: 065
     Dates: start: 20230103, end: 20230103
  51. FUROSEMIDE [Suspect]
     Active Substance: FUROSEMIDE
     Indication: Product used for unknown indication
     Dosage: (DOSAGE TEXT: UNK)
     Route: 065
     Dates: start: 20230103, end: 20230103
  52. FUROSEMIDE [Suspect]
     Active Substance: FUROSEMIDE
     Dosage: (DOSAGE TEXT: UNK)
     Route: 065
     Dates: start: 20230210, end: 20230210
  53. FUROSEMIDE [Suspect]
     Active Substance: FUROSEMIDE
     Dosage: (DOSAGE TEXT: UNK)
     Route: 065
     Dates: start: 20230523, end: 20230523
  54. FUROSEMIDE [Suspect]
     Active Substance: FUROSEMIDE
     Dosage: (DOSAGE TEXT: UNK)
     Route: 065
     Dates: start: 20230429, end: 20230429
  55. FUROSEMIDE [Suspect]
     Active Substance: FUROSEMIDE
     Dosage: (DOSAGE TEXT: UNK)
     Route: 065
     Dates: start: 20220307, end: 20220307
  56. FUROSEMIDE [Suspect]
     Active Substance: FUROSEMIDE
     Dosage: (DOSAGE TEXT: UNK)
     Route: 065
     Dates: start: 20221122, end: 20221122
  57. FLUOROURACIL [Suspect]
     Active Substance: FLUOROURACIL
     Indication: Product used for unknown indication
     Dosage: 2000 MG (MILLIGRAM) (DOSAGE TEXT: 2000 MG)
     Route: 042
     Dates: start: 20230309, end: 20230309
  58. FLUOROURACIL [Suspect]
     Active Substance: FLUOROURACIL
     Dosage: 2000 MG (MILLIGRAM) (DOSAGE TEXT: 2000 MG)
     Route: 042
     Dates: start: 20221123, end: 20221123
  59. FLUOROURACIL [Suspect]
     Active Substance: FLUOROURACIL
     Dosage: 2000 MG (MILLIGRAM) (DOSAGE TEXT: 2000 MG)
     Route: 042
     Dates: start: 20230212, end: 20230212
  60. FLUOROURACIL [Suspect]
     Active Substance: FLUOROURACIL
     Dosage: 2000 MG (MILLIGRAM) (DOSAGE TEXT: 2000 MG (IV, 24 HOURS INFUSION)
     Route: 042
     Dates: start: 20221125, end: 20221125
  61. FLUOROURACIL [Suspect]
     Active Substance: FLUOROURACIL
     Dosage: 2000 MG (MILLIGRAM) (DOSAGE TEXT: 2000 MG)
     Route: 042
     Dates: start: 20230106, end: 20230106
  62. FLUOROURACIL [Suspect]
     Active Substance: FLUOROURACIL
     Dosage: 2000 MG (MILLIGRAM) (DOSAGE TEXT: 2000 MG)
     Route: 042
     Dates: start: 20221124, end: 20221124
  63. FLUOROURACIL [Suspect]
     Active Substance: FLUOROURACIL
     Dosage: 2000 MG (MILLIGRAM) (DOSAGE TEXT: 2000 MG)
     Route: 042
     Dates: start: 20221122, end: 20221122
  64. FLUOROURACIL [Suspect]
     Active Substance: FLUOROURACIL
     Dosage: 2000 MG (MILLIGRAM) (DOSAGE TEXT: 2000 MG)
     Route: 042
     Dates: start: 20230105, end: 20230105
  65. FLUOROURACIL [Suspect]
     Active Substance: FLUOROURACIL
     Dosage: 2000 MG (MILLIGRAM) (DOSAGE TEXT: 2000 MG)
     Route: 042
     Dates: start: 20230308, end: 20230308
  66. FLUOROURACIL [Suspect]
     Active Substance: FLUOROURACIL
     Dosage: 2000 MG (MILLIGRAM) (DOSAGE TEXT: 2000 MG)
     Route: 042
     Dates: start: 20230307, end: 20230307
  67. FLUOROURACIL [Suspect]
     Active Substance: FLUOROURACIL
     Dosage: 2000 MG (MILLIGRAM) (DOSAGE TEXT: 2000 MG)
     Route: 042
     Dates: start: 20230213, end: 20230213
  68. FLUOROURACIL [Suspect]
     Active Substance: FLUOROURACIL
     Dosage: 2000 MG (MILLIGRAM) (DOSAGE TEXT: 2000 MG IV)
     Route: 042
     Dates: start: 20230103, end: 20230103
  69. FLUOROURACIL [Suspect]
     Active Substance: FLUOROURACIL
     Dosage: 2000 MG (MILLIGRAM) (DOSAGE TEXT: 2000 MG)
     Route: 042
     Dates: start: 20230211, end: 20230211
  70. FLUOROURACIL [Suspect]
     Active Substance: FLUOROURACIL
     Dosage: 2000 MG (MILLIGRAM) (DOSAGE TEXT: 2000 MG)
     Route: 042
     Dates: start: 20230104, end: 20230104
  71. FLUOROURACIL [Suspect]
     Active Substance: FLUOROURACIL
     Dosage: 2000 MG (MILLIGRAM) (DOSAGE TEXT: 2000 MG)
     Route: 042
     Dates: start: 20230210, end: 20230210
  72. FLUOROURACIL [Suspect]
     Active Substance: FLUOROURACIL
     Dosage: 2000 MG (MILLIGRAM) (DOSAGE TEXT: 2000 MG)
     Route: 042
     Dates: start: 20230310, end: 20230310
  73. EMEND [Suspect]
     Active Substance: APREPITANT
     Indication: Product used for unknown indication
     Dosage: (DOSAGE TEXT: UNK)
     Route: 048
     Dates: start: 20230307, end: 20230307
  74. EMEND [Suspect]
     Active Substance: APREPITANT
     Dosage: (DOSAGE TEXT: UNK)
     Route: 048
     Dates: start: 20230523, end: 20230523
  75. EMEND [Suspect]
     Active Substance: APREPITANT
     Dosage: (DOSAGE TEXT: UNK)
     Route: 048
     Dates: start: 20221122, end: 20221122
  76. EMEND [Suspect]
     Active Substance: APREPITANT
     Dosage: (DOSAGE TEXT: UNK)
     Route: 048
     Dates: start: 20230210, end: 20230210
  77. EMEND [Suspect]
     Active Substance: APREPITANT
     Dosage: (DOSAGE TEXT: UNK)
     Route: 048
     Dates: start: 20230429, end: 20230429
  78. EMEND [Suspect]
     Active Substance: APREPITANT
     Dosage: (DOSAGE TEXT: UNK)
     Route: 048
     Dates: start: 20230103, end: 20230103
  79. PEMBROLIZUMAB [Suspect]
     Active Substance: PEMBROLIZUMAB
     Indication: Product used for unknown indication
     Dosage: 200 MG (MILLIGRAM) (DOSAGE TEXT: 200 MG IV, 5TH DOSE)
     Route: 042
     Dates: start: 20230307, end: 20230307
  80. PEMBROLIZUMAB [Suspect]
     Active Substance: PEMBROLIZUMAB
     Dosage: 200 MG (MILLIGRAM) (DOSAGE TEXT: 200 MG IV, 7TH DOSE)
     Route: 042
     Dates: start: 20230429, end: 20230429
  81. PEMBROLIZUMAB [Suspect]
     Active Substance: PEMBROLIZUMAB
     Dosage: 200 MG (MILLIGRAM) (DOSAGE TEXT: 200 MG IV, 4TH DOSE)
     Route: 042
     Dates: start: 20230210, end: 20230210
  82. PEMBROLIZUMAB [Suspect]
     Active Substance: PEMBROLIZUMAB
     Dosage: 200 MG (MILLIGRAM) (DOSAGE TEXT: 200 MG IV,8TH CYCLE)
     Route: 042
     Dates: start: 20230523, end: 20230523
  83. PEMBROLIZUMAB [Suspect]
     Active Substance: PEMBROLIZUMAB
     Dosage: 200 MG (MILLIGRAM) (DOSAGE TEXT: 200 MG IV, 9 DOSE)
     Route: 042
     Dates: start: 20230613, end: 20230613
  84. PEMBROLIZUMAB [Suspect]
     Active Substance: PEMBROLIZUMAB
     Dosage: 200 MG (MILLIGRAM) (DOSAGE TEXT: 200 MG IV DOSE 6)
     Route: 042
     Dates: start: 20230403, end: 20230403
  85. PEMBROLIZUMAB [Suspect]
     Active Substance: PEMBROLIZUMAB
     Dosage: 200 MG (MILLIGRAM) (DOSAGE TEXT: 200 MG, 2ND DOSE)
     Route: 042
     Dates: start: 20221208, end: 20221208
  86. PEMBROLIZUMAB [Suspect]
     Active Substance: PEMBROLIZUMAB
     Dosage: 200 MG (MILLIGRAM) (DOSAGE TEXT: 200 MG, 3RD DOSE)
     Route: 042
     Dates: start: 20230103, end: 20230103
  87. PEMBROLIZUMAB [Suspect]
     Active Substance: PEMBROLIZUMAB
     Dosage: 200 MG (MILLIGRAM) (DOSAGE TEXT: 200 MG)
     Route: 042
     Dates: start: 20220812, end: 20220812
  88. PEMBROLIZUMAB [Suspect]
     Active Substance: PEMBROLIZUMAB
     Dosage: 200 MG (MILLIGRAM) (DOSAGE TEXT: 200 MILLIGRAM, 1SR DOSE)
     Route: 042
     Dates: start: 20221122, end: 20221122
  89. DAPAGLIFLOZIN [Concomitant]
     Active Substance: DAPAGLIFLOZIN
     Indication: Product used for unknown indication
     Dosage: 10 MG (MILLIGRAM) (DOSAGE TEXT: 10 MG 1 TABLET IN THE MORNING)
     Route: 065

REACTIONS (29)
  - Cardiac failure [Unknown]
  - Aortic stenosis [Unknown]
  - Atrial fibrillation [Unknown]
  - Lumbar vertebral fracture [Unknown]
  - Anaemia [Recovering/Resolving]
  - White blood cell count increased [Unknown]
  - Blood folate decreased [Unknown]
  - Pulmonary septal thickening [Unknown]
  - C-reactive protein decreased [Unknown]
  - Blood urea decreased [Unknown]
  - Platelet count decreased [Unknown]
  - Lung infiltration [Unknown]
  - Left atrial dilatation [Unknown]
  - Blood albumin decreased [Unknown]
  - Blood chloride decreased [Unknown]
  - C-reactive protein increased [Unknown]
  - Eosinophil count decreased [Unknown]
  - Blood urea increased [Unknown]
  - Blood creatine decreased [Unknown]
  - Blood magnesium decreased [Unknown]
  - Oedema peripheral [Unknown]
  - Protein total decreased [Unknown]
  - Aortic valve calcification [Unknown]
  - Supraventricular extrasystoles [Unknown]
  - Procalcitonin decreased [Unknown]
  - Eosinophil percentage decreased [Unknown]
  - Red cell distribution width increased [Unknown]
  - Pleural effusion [Unknown]
  - Asthenia [Unknown]

NARRATIVE: CASE EVENT DATE: 20221208
